FAERS Safety Report 8125080-1 (Version None)
Quarter: 2012Q1

REPORT INFORMATION
  Report Type: 
  Country: None (occurrence: None)
  Receive Date: 20120209
  Receipt Date: 20120125
  Transmission Date: 20120608
  Serious: Yes (Other)
  Sender: FDA-Public Use
  Company Number: US-ROCHE-1035827

PATIENT
  Sex: Female

DRUGS (12)
  1. MULTIMINERAL [Concomitant]
  2. ZANTAC [Concomitant]
  3. PROVENTIL-HFA [Concomitant]
     Indication: CHRONIC OBSTRUCTIVE PULMONARY DISEASE
  4. PRISTIQ [Suspect]
     Indication: DEPRESSION
     Dates: start: 20110101
  5. NEXIUM [Concomitant]
  6. METOCLOPRAMIDE [Concomitant]
  7. CHANTIX [Concomitant]
     Dates: start: 20111201
  8. OXYCODONE HCL [Concomitant]
  9. OXYBUTYNIN [Concomitant]
  10. KLONOPIN [Suspect]
     Indication: ANXIETY
  11. MELOXICAM [Concomitant]
  12. CARISOPRODOL [Concomitant]

REACTIONS (4)
  - MULTIPLE SCLEROSIS [None]
  - DEPRESSION [None]
  - ANXIETY [None]
  - AFFECT LABILITY [None]
